FAERS Safety Report 8322402-3 (Version None)
Quarter: 2012Q2

REPORT INFORMATION
  Report Type: 
  Country: None (occurrence: None)
  Receive Date: 20120426
  Receipt Date: 20120411
  Transmission Date: 20120825
  Serious: Yes (Hospitalization)
  Sender: FDA-Public Use
  Company Number: SPI201200074

PATIENT
  Age: 73 Year
  Sex: Female
  Weight: 61.2 kg

DRUGS (8)
  1. ACIPHEX [Concomitant]
  2. SUCRALFATE [Concomitant]
  3. ASPIRIN [Concomitant]
  4. AMITIZA [Suspect]
     Indication: CONSTIPATION
     Dosage: 8 MCG, TID, ORAL 8 MCG, TID (INTERMITTENTLY), ORAL 8 MCG, TID, ORAL
     Route: 048
     Dates: start: 20120411
  5. AMITIZA [Suspect]
     Indication: CONSTIPATION
     Dosage: 8 MCG, TID, ORAL 8 MCG, TID (INTERMITTENTLY), ORAL 8 MCG, TID, ORAL
     Route: 048
     Dates: start: 20110411, end: 20110401
  6. AMITIZA [Suspect]
     Indication: CONSTIPATION
     Dosage: 8 MCG, TID, ORAL 8 MCG, TID (INTERMITTENTLY), ORAL 8 MCG, TID, ORAL
     Route: 048
     Dates: start: 20110101
  7. TOPROL-XL [Concomitant]
  8. ALPRAZOLAM [Concomitant]

REACTIONS (6)
  - CHEST DISCOMFORT [None]
  - HEADACHE [None]
  - RASH [None]
  - COUGH [None]
  - DRUG INEFFECTIVE [None]
  - OEDEMA PERIPHERAL [None]
